FAERS Safety Report 15022073 (Version 5)
Quarter: 2019Q1

REPORT INFORMATION
  Report Type: Spontaneous
  Country: US (occurrence: US)
  Receive Date: 20180618
  Receipt Date: 20190307
  Transmission Date: 20190417
  Serious: Yes (Hospitalization, Other)
  Sender: FDA-Public Use
  Company Number: US-SA-2018SA157272

PATIENT
  Age: 64 Year
  Sex: Male

DRUGS (3)
  1. AUBAGIO [Suspect]
     Active Substance: TERIFLUNOMIDE
     Dosage: 14 MG, QD
     Route: 048
     Dates: start: 20180126
  2. AUBAGIO [Suspect]
     Active Substance: TERIFLUNOMIDE
     Indication: MULTIPLE SCLEROSIS
     Dosage: 14 MG, QD
     Route: 048
     Dates: start: 20180125
  3. AUBAGIO [Suspect]
     Active Substance: TERIFLUNOMIDE
     Dosage: 14 MG, QD
     Route: 048

REACTIONS (14)
  - Injury [Unknown]
  - Mobility decreased [Unknown]
  - Drug ineffective [Unknown]
  - Fatigue [Unknown]
  - Loss of personal independence in daily activities [Unknown]
  - Pain in extremity [Unknown]
  - Balance disorder [Unknown]
  - Arthralgia [Unknown]
  - Vitamin D decreased [Unknown]
  - Visual impairment [Unknown]
  - Fall [Unknown]
  - Depression [Unknown]
  - Spinal fusion surgery [Not Recovered/Not Resolved]
  - Blood uric acid increased [Unknown]
